FAERS Safety Report 16702258 (Version 2)
Quarter: 2019Q3

REPORT INFORMATION
  Report Type: Spontaneous
  Country: US (occurrence: US)
  Receive Date: 20190814
  Receipt Date: 20190829
  Transmission Date: 20191004
  Serious: No
  Sender: FDA-Public Use
  Company Number: US-PFIZER INC-2019344521

PATIENT
  Sex: Female

DRUGS (9)
  1. FLEXERIL [CEFIXIME] [Suspect]
     Active Substance: CEFIXIME
     Dosage: UNK
  2. WELLBUTRIN SR [Suspect]
     Active Substance: BUPROPION HYDROCHLORIDE
     Dosage: UNK
  3. NEURONTIN [Suspect]
     Active Substance: GABAPENTIN
     Dosage: UNK
  4. SALAGEN [Suspect]
     Active Substance: PILOCARPINE HYDROCHLORIDE
     Dosage: UNK
  5. FERREX [Suspect]
     Active Substance: FERRIC POLYSACCHARIDE COMPLEX
     Dosage: UNK
  6. SEROQUEL [Suspect]
     Active Substance: QUETIAPINE FUMARATE
     Dosage: UNK
  7. CELEBREX [Suspect]
     Active Substance: CELECOXIB
     Dosage: UNK
  8. PROCARDIA [Suspect]
     Active Substance: NIFEDIPINE
     Dosage: UNK
  9. PLAQUENIL [Suspect]
     Active Substance: HYDROXYCHLOROQUINE SULFATE
     Dosage: UNK

REACTIONS (1)
  - Drug hypersensitivity [Unknown]
